FAERS Safety Report 17490976 (Version 1)
Quarter: 2020Q1

REPORT INFORMATION
  Report Type: Report from Study
  Country: None (occurrence: US)
  Receive Date: 20200304
  Receipt Date: 20200304
  Transmission Date: 20200409
  Serious: Yes (Other)
  Sender: FDA-Public Use
  Company Number: US-ABBVIE-20K-163-3216765-00

PATIENT
  Age: 62 Year
  Sex: Male
  Weight: 57.8 kg

DRUGS (3)
  1. VENCLEXTA [Suspect]
     Active Substance: VENETOCLAX
     Dosage: EVERY MORNING WITH FOOD
     Route: 048
  2. VENCLEXTA [Suspect]
     Active Substance: VENETOCLAX
     Dosage: EVERY MORNING WITH FOOD
     Route: 048
  3. VENCLEXTA [Suspect]
     Active Substance: VENETOCLAX
     Indication: CHRONIC LYMPHOCYTIC LEUKAEMIA
     Dosage: EVERY MORNING WITH FOOD
     Route: 048
     Dates: start: 20191216

REACTIONS (23)
  - Lung abscess [Unknown]
  - Lymphadenopathy [Unknown]
  - Nausea [Unknown]
  - Neutrophil count decreased [Unknown]
  - Biliary dilatation [Unknown]
  - Body temperature decreased [Unknown]
  - Blood glucose increased [Unknown]
  - White blood cell count decreased [Unknown]
  - Red blood cell count decreased [Unknown]
  - Electrocardiogram QT prolonged [Unknown]
  - Hypertension [Unknown]
  - Lymphadenopathy mediastinal [Unknown]
  - Neutropenia [Unknown]
  - Anaemia [Unknown]
  - Unevaluable event [Not Recovered/Not Resolved]
  - Tumour necrosis [Unknown]
  - Haemoglobin decreased [Unknown]
  - Vomiting [Unknown]
  - Pneumonia [Not Recovered/Not Resolved]
  - Spinal operation [Unknown]
  - Mean cell volume increased [Unknown]
  - Platelet count decreased [Unknown]
  - Hilar lymphadenopathy [Unknown]

NARRATIVE: CASE EVENT DATE: 201912
